FAERS Safety Report 15517160 (Version 1)
Quarter: 2018Q4

REPORT INFORMATION
  Report Type: Report from Study
  Country: US (occurrence: US)
  Receive Date: 20181017
  Receipt Date: 20181017
  Transmission Date: 20190205
  Serious: No
  Sender: FDA-Public Use
  Company Number: US-AMGEN-USASL2018119667

PATIENT
  Age: 69 Year
  Sex: Female

DRUGS (3)
  1. CYTOXAN [Suspect]
     Active Substance: CYCLOPHOSPHAMIDE
     Indication: PLASMA CELL MYELOMA
     Dosage: 500 MG, UNK
     Route: 065
  2. DECADRON [Suspect]
     Active Substance: DEXAMETHASONE
     Indication: PLASMA CELL MYELOMA
     Dosage: 20 MG, UNK
     Route: 065
  3. KYPROLIS [Suspect]
     Active Substance: CARFILZOMIB
     Indication: PLASMA CELL MYELOMA
     Dosage: 56 MG, ONCE A WEEK FOR 3 WEEKS THEN 1 WEEK OFF
     Route: 065

REACTIONS (7)
  - Vomiting [Unknown]
  - Underweight [Unknown]
  - Feeling abnormal [Unknown]
  - Asthenia [Unknown]
  - Off label use [Unknown]
  - Headache [Not Recovered/Not Resolved]
  - Nausea [Unknown]
